FAERS Safety Report 15841799 (Version 3)
Quarter: 2019Q1

REPORT INFORMATION
  Report Type: Not Available
  Country: US (occurrence: US)
  Receive Date: 20190118
  Receipt Date: 20190326
  Transmission Date: 20190417
  Serious: No
  Sender: FDA-Public Use
  Company Number: US-NEUROCRINE BIOSCIENCES INC.-2019NBI00093

PATIENT
  Sex: Female

DRUGS (3)
  1. INGREZZA [Suspect]
     Active Substance: VALBENAZINE
     Indication: TARDIVE DYSKINESIA
     Dates: start: 20180709, end: 20181225
  2. INGREZZA [Suspect]
     Active Substance: VALBENAZINE
     Dosage: UNSPECIFIED DOSE
  3. INGREZZA [Suspect]
     Active Substance: VALBENAZINE
     Dates: start: 2019, end: 2019

REACTIONS (6)
  - Mental impairment [Recovered/Resolved]
  - Illusion [Recovered/Resolved]
  - Fatigue [Recovered/Resolved]
  - Visual impairment [Recovered/Resolved]
  - Drug ineffective [None]
  - Bipolar disorder [Recovered/Resolved]
